FAERS Safety Report 4283860-7 (Version None)
Quarter: 2004Q1

REPORT INFORMATION
  Report Type: 
  Country: None (occurrence: None)
  Receive Date: 20040130
  Receipt Date: 20040120
  Transmission Date: 20041129
  Serious: Yes (Other)
  Sender: FDA-Public Use
  Company Number: 2004195359US

PATIENT
  Age: 62 Year
  Sex: Female

DRUGS (2)
  1. IDAMYCIN [Suspect]
     Indication: ACUTE MYELOID LEUKAEMIA
     Dosage: 12 MG/M2, QD, FOR 3 DAYS,
  2. CYTARABINE [Suspect]
     Indication: ACUTE MYELOID LEUKAEMIA
     Dosage: 100 MG/M2, FOR 7 DAYS, IV
     Route: 042

REACTIONS (7)
  - ACTINOMYCOSIS [None]
  - BACTERAEMIA [None]
  - CAPNOCYTOPHAGIA INFECTION [None]
  - HAEMATOCRIT ABNORMAL [None]
  - HAEMOGLOBIN ABNORMAL [None]
  - PLATELET COUNT DECREASED [None]
  - TOOTH ABSCESS [None]
